FAERS Safety Report 9280696 (Version 2)
Quarter: 2013Q2

REPORT INFORMATION
  Report Type: Spontaneous
  Country: US (occurrence: US)
  Receive Date: 20130509
  Receipt Date: 20130510
  Transmission Date: 20140414
  Serious: No
  Sender: FDA-Public Use
  Company Number: US-PFIZER INC-2013143115

PATIENT
  Age: 81 Year
  Sex: Male
  Weight: 73.92 kg

DRUGS (5)
  1. LYRICA [Suspect]
     Indication: ANXIETY
     Dosage: 500 MG, 1X/DAY
  2. RESTORIL [Concomitant]
     Indication: INSOMNIA
     Dosage: 30 MG, 1X/DAY
  3. POTASSIUM CHLORIDE [Concomitant]
     Indication: BLOOD POTASSIUM DECREASED
     Dosage: 10 MEQ, 1X/DAY
  4. FUROSEMIDE [Concomitant]
     Indication: OEDEMA
     Dosage: 5 MG, 1X/DAY
  5. SYNTHROID [Concomitant]
     Indication: HYPOTHYROIDISM
     Dosage: 0.88 MG, 1X/DAY

REACTIONS (1)
  - Weight increased [Not Recovered/Not Resolved]
